FAERS Safety Report 5466642-X (Version None)
Quarter: 2007Q3

REPORT INFORMATION
  Report Type: 
  Country: None (occurrence: None)
  Receive Date: 20070921
  Receipt Date: 20070921
  Transmission Date: 20080115
  Serious: No
  Sender: FDA-Public Use
  Company Number: None

PATIENT
  Age: 64 Year
  Sex: Female

DRUGS (2)
  1. BENADRYL TOTAL [Suspect]
     Dosage: CAPLET
  2. BENADRYL [Suspect]
     Dosage: CAPLET

REACTIONS (5)
  - CEREBROVASCULAR ACCIDENT [None]
  - MEDICATION ERROR [None]
  - SPEECH DISORDER [None]
  - VISUAL DISTURBANCE [None]
  - WRONG DRUG ADMINISTERED [None]
